FAERS Safety Report 8097911-5 (Version None)
Quarter: 2012Q1

REPORT INFORMATION
  Report Type: 
  Country: None (occurrence: None)
  Receive Date: 20120128
  Receipt Date: 20110720
  Transmission Date: 20120608
  Serious: No
  Sender: FDA-Public Use
  Company Number: US-ABBOTT-11P-163-0840773-00

PATIENT
  Age: 59 Year
  Sex: Female

DRUGS (2)
  1. ARAVA [Concomitant]
     Indication: PSORIATIC ARTHROPATHY
     Dates: start: 20040101
  2. HUMIRA [Suspect]
     Indication: PSORIATIC ARTHROPATHY
     Dates: start: 20081201

REACTIONS (1)
  - INJECTION SITE PAIN [None]
